FAERS Safety Report 7893718-X (Version None)
Quarter: 2011Q4

REPORT INFORMATION
  Report Type: 
  Country: None (occurrence: None)
  Receive Date: 20111104
  Receipt Date: 20111031
  Transmission Date: 20120403
  Serious: Yes (Death)
  Sender: FDA-Public Use
  Company Number: US-PFIZER INC-2011265894

PATIENT
  Sex: Male

DRUGS (1)
  1. VFEND [Suspect]
     Indication: CHRONIC LYMPHOCYTIC LEUKAEMIA
     Dosage: 200 MG, 2X/DAY
     Dates: start: 20110906

REACTIONS (1)
  - DEATH [None]
